FAERS Safety Report 9065478 (Version 1)
Quarter: 2013Q1

REPORT INFORMATION
  Report Type: Report from Study
  Country: US (occurrence: US)
  Receive Date: 20130131
  Receipt Date: 20130131
  Transmission Date: 20140127
  Serious: Yes (Hospitalization)
  Sender: FDA-Public Use
  Company Number: US-ABBOTT-12P-163-1021720-00

PATIENT
  Age: 22 Year
  Sex: Male

DRUGS (16)
  1. HUMIRA [Suspect]
     Indication: CROHN^S DISEASE
     Dates: start: 20120913
  2. ABILIFY [Concomitant]
     Indication: DEPRESSION
     Dosage: 7.5 MG DAILY
  3. PAXIL [Concomitant]
     Indication: OBSESSIVE-COMPULSIVE DISORDER
     Dosage: 20 MG DAILY
  4. PAXIL [Concomitant]
     Indication: DEPRESSION
  5. COGENTIN [Concomitant]
     Indication: TREMOR
     Dosage: 0.5 MG DAILY
  6. ZOFRAN [Concomitant]
     Indication: ABDOMINAL DISCOMFORT
  7. ZOFRAN [Concomitant]
     Indication: CROHN^S DISEASE
  8. REGLAN [Concomitant]
     Indication: NAUSEA
  9. REGLAN [Concomitant]
     Indication: CROHN^S DISEASE
  10. PHENERGAN [Concomitant]
     Indication: NAUSEA
  11. PHENERGAN [Concomitant]
     Indication: CROHN^S DISEASE
  12. KLONOPIN [Concomitant]
     Indication: ANXIETY
  13. PERCOCET [Concomitant]
     Indication: PAIN
     Dosage: 5/325 MG AS REQUIRED
  14. PERCOCET [Concomitant]
     Indication: CROHN^S DISEASE
  15. DILAUDID [Concomitant]
     Indication: PAIN
  16. DILAUDID [Concomitant]
     Indication: CROHN^S DISEASE

REACTIONS (1)
  - Crohn^s disease [Not Recovered/Not Resolved]
